FAERS Safety Report 8366710-9 (Version None)
Quarter: 2012Q1

REPORT INFORMATION
  Report Type: 
  Country: None (occurrence: None)
  Receive Date: 20120323
  Receipt Date: 20110411
  Transmission Date: 20120608
  Serious: Yes (Hospitalization)
  Sender: FDA-Public Use
  Company Number: 163-21880-11041249

PATIENT
  Sex: Male

DRUGS (3)
  1. REVLIMID [Suspect]
     Indication: MULTIPLE MYELOMA
     Dosage: 2.1429 MG, 3 IN 1 WK, PO ; 10 MG, DAILY X 14 DAYS, PO ; 10 MG, DAILY X 14 DAYS, PO
     Route: 048
     Dates: start: 20110211, end: 20110315
  2. REVLIMID [Suspect]
     Indication: MULTIPLE MYELOMA
     Dosage: 2.1429 MG, 3 IN 1 WK, PO ; 10 MG, DAILY X 14 DAYS, PO ; 10 MG, DAILY X 14 DAYS, PO
     Route: 048
     Dates: start: 20100101
  3. REVLIMID [Suspect]
     Indication: MULTIPLE MYELOMA
     Dosage: 2.1429 MG, 3 IN 1 WK, PO ; 10 MG, DAILY X 14 DAYS, PO ; 10 MG, DAILY X 14 DAYS, PO
     Route: 048
     Dates: start: 20100701

REACTIONS (1)
  - ATRIAL FIBRILLATION [None]
